FAERS Safety Report 13729333 (Version 2)
Quarter: 2017Q3

REPORT INFORMATION
  Report Type: Spontaneous
  Country: PT (occurrence: PT)
  Receive Date: 20170707
  Receipt Date: 20170720
  Transmission Date: 20171127
  Serious: Yes (Hospitalization)
  Sender: FDA-Public Use
  Company Number: PT-EISAI MEDICAL RESEARCH-EC-2017-028971

PATIENT
  Age: 62 Year
  Sex: Male
  Weight: 79.7 kg

DRUGS (2)
  1. LENVIMA [Suspect]
     Active Substance: LENVATINIB
     Indication: FOLLICULAR THYROID CANCER
     Route: 048
     Dates: start: 20161108, end: 20170621
  2. LENVIMA [Suspect]
     Active Substance: LENVATINIB
     Route: 048
     Dates: start: 20170628

REACTIONS (6)
  - Diarrhoea [Recovered/Resolved]
  - Acute prerenal failure [Recovering/Resolving]
  - Craniocerebral injury [Unknown]
  - Hypokalaemia [Recovering/Resolving]
  - Fall [Recovered/Resolved]
  - Dehydration [Recovering/Resolving]

NARRATIVE: CASE EVENT DATE: 2017
